FAERS Safety Report 5369901-4 (Version None)
Quarter: 2007Q2

REPORT INFORMATION
  Report Type: 
  Country: None (occurrence: None)
  Receive Date: 20070621
  Receipt Date: 20070608
  Transmission Date: 20071010
  Serious: Yes (Death)
  Sender: FDA-Public Use
  Company Number: 200712825GDDC

PATIENT
  Age: 72 Year
  Sex: Female
  Weight: 72 kg

DRUGS (11)
  1. DOCEXTAL SOLUTION FOR INFUSION [Suspect]
     Indication: NEOPLASM MALIGNANT
     Dosage: 173.29 MG CYC IV
     Route: 042
     Dates: start: 20060904, end: 20060904
  2. DOCETAXEL SOLUTION FOR INFUSION [Suspect]
     Indication: NEOPLASM MALIGNANT
     Dosage: 171.29 MG CYC IV
     Route: 042
     Dates: start: 20060926, end: 20060926
  3. DOXETAXEL SOLUTION FOR INFUSION [Suspect]
     Indication: NEOPLASM MALIGNANT
     Dosage: 171.29 MG CYC IV
     Route: 042
     Dates: start: 20061017, end: 20061027
  4. CPD SOLUTION IN GLASS BOTTLES INJ [Suspect]
     Indication: NEOPLASM MALIGNANT
     Dosage: 342.58 MG CYC IV
     Route: 042
     Dates: start: 20061017, end: 20061017
  5. RADIATION THERAPY [Suspect]
     Indication: NEOPLASM MALIGNANT
  6. SEGURIL [Concomitant]
  7. PAROXETINA [Concomitant]
  8. AMIODARONE HYDROCHLORIDE [Concomitant]
  9. ADIRO [Concomitant]
  10. SPIRIVA [Concomitant]
  11. DIFLUCAN [Concomitant]

REACTIONS (33)
  - ALANINE AMINOTRANSFERASE INCREASED [None]
  - ASPARTATE AMINOTRANSFERASE INCREASED [None]
  - ATRIAL FIBRILLATION [None]
  - BLOOD BICARBONATE DECREASED [None]
  - BLOOD BILIRUBIN INCREASED [None]
  - BLOOD CHLORIDE DECREASED [None]
  - BLOOD CREATININE INCREASED [None]
  - BLOOD GLUCOSE INCREASED [None]
  - BLOOD PH DECREASED [None]
  - BLOOD SODIUM DECREASED [None]
  - BUNDLE BRANCH BLOCK RIGHT [None]
  - CARDIOGENIC SHOCK [None]
  - COAGULOPATHY [None]
  - CONDITION AGGRAVATED [None]
  - FALL [None]
  - FATIGUE [None]
  - HAEMODYNAMIC INSTABILITY [None]
  - HEPATIC FUNCTION ABNORMAL [None]
  - HYPERHIDROSIS [None]
  - LYMPHOCYTE PERCENTAGE DECREASED [None]
  - METABOLIC ACIDOSIS [None]
  - MULTI-ORGAN FAILURE [None]
  - MYOCARDIAL INFARCTION [None]
  - NEUTROPHIL PERCENTAGE INCREASED [None]
  - NO THERAPEUTIC RESPONSE [None]
  - OXYGEN SATURATION DECREASED [None]
  - PCO2 INCREASED [None]
  - PNEUMONIA [None]
  - PO2 DECREASED [None]
  - POOR PERIPHERAL CIRCULATION [None]
  - RENAL FAILURE [None]
  - WEIGHT DECREASED [None]
  - WHITE BLOOD CELL COUNT DECREASED [None]
